FAERS Safety Report 9741409 (Version 2)
Quarter: 2014Q1

REPORT INFORMATION
  Report Type: Spontaneous
  Country: FR (occurrence: FR)
  Receive Date: 20131209
  Receipt Date: 20140103
  Transmission Date: 20141002
  Serious: Yes (Hospitalization)
  Sender: FDA-Public Use
  Company Number: PHHY2013FR139873

PATIENT
  Age: 83 Year
  Sex: Female

DRUGS (9)
  1. CO-TAREG [Suspect]
     Dosage: 1 DF (80MG VALS/12.5MG HYDR), QD
     Route: 048
  2. ANAFRANIL [Suspect]
     Dosage: 25 MG, QD
     Route: 048
  3. DESLORATADINE [Suspect]
     Dosage: UNK UKN, UNK
     Route: 048
  4. ERCEFURYL 200 MG [Suspect]
     Dosage: 800 UKN, UNK
     Route: 048
     Dates: start: 2004, end: 201310
  5. DIAMICRON [Suspect]
     Dosage: 80 MG, TID
     Route: 048
  6. SERESTA [Suspect]
     Dosage: 25 MG, QD
     Route: 048
  7. CRESTOR [Suspect]
     Dosage: 5 MG, QD
     Route: 048
  8. PLAVIX [Suspect]
     Dosage: 75 MG, QD
     Route: 048
  9. ROCEPHIN [Concomitant]
     Indication: URINARY TRACT INFECTION
     Dosage: 1 G, DAILY
     Dates: start: 20131017

REACTIONS (1)
  - Interstitial lung disease [Not Recovered/Not Resolved]
